FAERS Safety Report 16288701 (Version 1)
Quarter: 2019Q2

REPORT INFORMATION
  Report Type: Report from Study
  Country: US (occurrence: US)
  Receive Date: 20190509
  Receipt Date: 20190509
  Transmission Date: 20190711
  Serious: Yes (Other)
  Sender: FDA-Public Use
  Company Number: US-CIPLA LTD.-2019US03022

PATIENT

DRUGS (4)
  1. 5-FU                               /00098801/ [Suspect]
     Active Substance: FLUOROURACIL
     Indication: APPENDIX CANCER
     Dosage: 2400 MILLIGRAM/SQ. METER, CONTINUOUS 46-H, TOTAL GIVEN OVER DAYS 2-4 IN 14-DAY CYCLES (DOSE LEVEL 2)
  2. ALISERTIB [Suspect]
     Active Substance: ALISERTIB
     Indication: APPENDIX CANCER
     Dosage: 20 MILLIGRAM/SQ. METER, BID, ON DAYS 1-3 (DOSE LEVEL 2)
     Route: 065
  3. LEUCOVORIN                         /00566701/ [Suspect]
     Active Substance: LEUCOVORIN
     Indication: APPENDIX CANCER
     Dosage: 400 MILLIGRAM/SQ. METER, UNK (DOSE LEVEL 2)
     Route: 065
  4. OXALIPLATIN. [Suspect]
     Active Substance: OXALIPLATIN
     Indication: APPENDIX CANCER
     Dosage: 85 MILLIGRAM/SQ. METER, UNK, ON DAY 2 (DOSE LEVEL 2)
     Route: 065

REACTIONS (1)
  - Toxicity to various agents [Unknown]
